FAERS Safety Report 9617823 (Version 3)
Quarter: 2014Q3

REPORT INFORMATION
  Report Type: Spontaneous
  Country: GB (occurrence: None)
  Receive Date: 20131009
  Receipt Date: 20140804
  Transmission Date: 20150326
  Serious: Yes (Hospitalization, Other)
  Sender: FDA-Public Use
  Company Number: AUR-APL-2013-08238

PATIENT
  Age: 21 Year
  Sex: Male
  Weight: 111.6 kg

DRUGS (5)
  1. RISPERIDONE FILM-COATED TABLETS 6 MG (RISPERIDONE) FILM-COATED TABLET, 6MG [Suspect]
     Active Substance: RISPERIDONE
     Indication: SCHIZOPHRENIA
     Dosage: 12 MG ( 6 MG, 2 IN 1 D), ORAL
     Route: 048
     Dates: end: 20130721
  2. EPILIM [Concomitant]
     Active Substance: VALPROATE SODIUM
  3. ZAPONEX [Suspect]
     Active Substance: CLOZAPINE
     Indication: SCHIZOPHRENIA
     Route: 048
     Dates: start: 20130705, end: 20130720
  4. LORAZEPAM (LORAZEPAM) [Concomitant]
     Active Substance: LORAZEPAM
  5. KWELLS (HYOSCINE HYDROBROMIDE) [Concomitant]

REACTIONS (10)
  - Platelet count decreased [None]
  - Hyperhidrosis [None]
  - Red blood cell count decreased [None]
  - Pyrexia [None]
  - Neuroleptic malignant syndrome [None]
  - Blood creatine phosphokinase increased [None]
  - Tachycardia [None]
  - Viral infection [None]
  - C-reactive protein increased [None]
  - Blood pressure systolic increased [None]

NARRATIVE: CASE EVENT DATE: 20130719
